FAERS Safety Report 19618123 (Version 1)
Quarter: 2021Q3

REPORT INFORMATION
  Report Type: Spontaneous
  Country: US (occurrence: US)
  Receive Date: 20210727
  Receipt Date: 20210727
  Transmission Date: 20211014
  Serious: No
  Sender: FDA-Public Use
  Company Number: US-ROCHE-2730495

PATIENT
  Sex: Female
  Weight: 46.76 kg

DRUGS (7)
  1. BIOTENE GUM [Concomitant]
  2. ADVIL [Concomitant]
     Active Substance: IBUPROFEN
     Indication: ARTHRITIS
     Route: 048
  3. XELODA [Suspect]
     Active Substance: CAPECITABINE
     Indication: BREAST CANCER METASTATIC
     Route: 048
     Dates: start: 2020
  4. CARVEDILOL. [Concomitant]
     Active Substance: CARVEDILOL
     Indication: HYPERTENSION
     Route: 048
  5. IBRANCE [Concomitant]
     Active Substance: PALBOCICLIB
  6. AMLODIPINE [Concomitant]
     Active Substance: AMLODIPINE BESYLATE
  7. ANASTROZOLE. [Concomitant]
     Active Substance: ANASTROZOLE

REACTIONS (8)
  - Asthenia [Not Recovered/Not Resolved]
  - Diarrhoea [Recovered/Resolved]
  - Hypotension [Recovered/Resolved]
  - Hypoaesthesia [Recovering/Resolving]
  - Swelling [Not Recovered/Not Resolved]
  - Palmar-plantar erythrodysaesthesia syndrome [Recovered/Resolved]
  - Dry mouth [Recovering/Resolving]
  - Salivary gland disorder [Unknown]

NARRATIVE: CASE EVENT DATE: 2020
